FAERS Safety Report 6646208-6 (Version None)
Quarter: 2010Q1

REPORT INFORMATION
  Report Type: 
  Country: None (occurrence: None)
  Receive Date: 20100322
  Receipt Date: 20100322
  Transmission Date: 20100710
  Serious: Yes (Other)
  Sender: FDA-Public Use
  Company Number: None

PATIENT
  Sex: Female
  Weight: 56.246 kg

DRUGS (1)
  1. DEPROVERA CONTRACEPTIVE INJECTION          PFIZER [Suspect]
     Indication: CONTRACEPTION
     Dosage: 150 MG Q 12 WK IM
     Route: 030
     Dates: start: 20080522

REACTIONS (1)
  - PREGNANCY WITH INJECTABLE CONTRACEPTIVE [None]
